FAERS Safety Report 6868798-0 (Version None)
Quarter: 2010Q3

REPORT INFORMATION
  Report Type: 
  Country: None (occurrence: None)
  Receive Date: 20100722
  Receipt Date: 20080619
  Transmission Date: 20110219
  Serious: Yes (Other)
  Sender: FDA-Public Use
  Company Number: US-PFIZER INC-2008052430

PATIENT
  Sex: Female
  Weight: 68 kg

DRUGS (7)
  1. CHANTIX [Suspect]
     Indication: SMOKING CESSATION THERAPY
     Dates: start: 20080613
  2. ABILIFY [Concomitant]
  3. CELEXA [Concomitant]
  4. ALPRAZOLAM [Concomitant]
  5. PROPRANOLOL [Concomitant]
  6. PROMETHAZINE [Concomitant]
  7. ZYRTEC [Concomitant]

REACTIONS (2)
  - DIABETES MELLITUS [None]
  - DRUG DOSE OMISSION [None]
